FAERS Safety Report 20795578 (Version 1)
Quarter: 2022Q2

REPORT INFORMATION
  Report Type: Spontaneous
  Country: US (occurrence: None)
  Receive Date: 20220506
  Receipt Date: 20220506
  Transmission Date: 20220720
  Serious: No
  Sender: FDA-Public Use
  Company Number: None

PATIENT
  Age: 55 Year
  Sex: Female
  Weight: 72 kg

DRUGS (1)
  1. VUITY [Suspect]
     Active Substance: PILOCARPINE HYDROCHLORIDE
     Indication: Presbyopia
     Dosage: OTHER QUANTITY : 1 DROP(S);?FREQUENCY : DAILY;?
     Route: 047
     Dates: start: 20220505, end: 20220505

REACTIONS (10)
  - Migraine [None]
  - Vision blurred [None]
  - Visual impairment [None]
  - Hyperacusis [None]
  - Photophobia [None]
  - Nausea [None]
  - Eye irritation [None]
  - Eye irritation [None]
  - Eye pain [None]
  - Drug ineffective [None]

NARRATIVE: CASE EVENT DATE: 20220505
